FAERS Safety Report 13376493 (Version 2)
Quarter: 2017Q2

REPORT INFORMATION
  Report Type: Spontaneous
  Country: US (occurrence: US)
  Receive Date: 20170328
  Receipt Date: 20170421
  Transmission Date: 20170830
  Serious: No
  Sender: FDA-Public Use
  Company Number: US-PFIZER INC-2017130770

PATIENT
  Sex: Female

DRUGS (1)
  1. XELJANZ [Suspect]
     Active Substance: TOFACITINIB CITRATE
     Dosage: UNK

REACTIONS (10)
  - Nausea [Unknown]
  - Dyspnoea [Not Recovered/Not Resolved]
  - Sinusitis [Unknown]
  - Dizziness [Not Recovered/Not Resolved]
  - Allergy to chemicals [Unknown]
  - Hypotension [Unknown]
  - Nasal congestion [Unknown]
  - Hypoaesthesia [Not Recovered/Not Resolved]
  - Food allergy [Unknown]
  - Hypersensitivity [Unknown]
